FAERS Safety Report 5688794-9 (Version None)
Quarter: 2008Q1

REPORT INFORMATION
  Report Type: 
  Country: None (occurrence: None)
  Receive Date: 20080331
  Receipt Date: 20080319
  Transmission Date: 20080703
  Serious: Yes (Other)
  Sender: FDA-Public Use
  Company Number: JP-ROCHE-547365

PATIENT
  Age: 71 Year
  Sex: Male

DRUGS (9)
  1. TAMIFLU [Suspect]
     Indication: INFLUENZA
     Route: 048
     Dates: start: 20080203, end: 20080204
  2. SINGULAIR [Concomitant]
     Route: 048
     Dates: start: 20020917
  3. THEO-DUR [Concomitant]
     Dosage: FORM: ORAL FORMULATION (NOT OTHERWISE SPECIFIED)
     Route: 048
     Dates: start: 20020917
  4. GASTER D [Concomitant]
     Route: 048
     Dates: start: 20020917
  5. SELBEX [Concomitant]
     Dosage: FORM: ORAL FORMULATION
     Route: 048
     Dates: start: 20020917
  6. MUCODYNE [Concomitant]
     Route: 048
     Dates: start: 20020917
  7. PREDONINE [Concomitant]
     Dates: start: 20020917
  8. FLUTIDE [Concomitant]
     Route: 055
     Dates: start: 20020917
  9. SEREVENT [Concomitant]
     Route: 055
     Dates: start: 20020917

REACTIONS (1)
  - URINARY RETENTION [None]
